FAERS Safety Report 4507989-0 (Version None)
Quarter: 2004Q4

REPORT INFORMATION
  Report Type: 
  Country: None (occurrence: None)
  Receive Date: 20041123
  Receipt Date: 20041115
  Transmission Date: 20050328
  Serious: Yes (Hospitalization)
  Sender: FDA-Public Use
  Company Number: US-JNJFOC-20040802785

PATIENT
  Sex: Female

DRUGS (12)
  1. REMICADE [Suspect]
     Indication: RHEUMATOID ARTHRITIS
     Route: 042
  2. METHOTREXATE [Concomitant]
  3. PREDNISONE [Concomitant]
  4. ZOCOR [Concomitant]
  5. ACTAS [Concomitant]
  6. ALLOPURINOL [Concomitant]
  7. FOSAMAX [Concomitant]
  8. LISINOPRIL [Concomitant]
  9. DARVOCET [Concomitant]
  10. DARVOCET [Concomitant]
  11. CALCIUM [Concomitant]
  12. FOLIC ACID [Concomitant]

REACTIONS (9)
  - CHILLS [None]
  - CYSTITIS [None]
  - HEADACHE [None]
  - MALAISE [None]
  - NAUSEA [None]
  - PNEUMONIA [None]
  - PYREXIA [None]
  - SEPSIS [None]
  - SHOCK [None]
